FAERS Safety Report 7860763-X (Version None)
Quarter: 2011Q4

REPORT INFORMATION
  Report Type: 
  Country: None (occurrence: None)
  Receive Date: 20111027
  Receipt Date: 20111005
  Transmission Date: 20120403
  Serious: Yes (Other)
  Sender: FDA-Public Use
  Company Number: CA-JNJFOC-20111010187

PATIENT
  Sex: Female

DRUGS (14)
  1. HYDROCHLOROTHIAZIDE [Concomitant]
  2. IRBESARTAN [Concomitant]
  3. MAGNESIUM [Concomitant]
  4. ACTONEL [Concomitant]
  5. METHOTREXATE [Concomitant]
  6. CALCIUM CARBONATE [Concomitant]
  7. REMICADE [Suspect]
     Indication: RHEUMATOID ARTHRITIS
     Dates: start: 20100816
  8. PREDNISONE [Concomitant]
  9. PERCOCET [Concomitant]
  10. NORVASC [Concomitant]
  11. WARFARIN SODIUM [Concomitant]
  12. VITAMIN D [Concomitant]
  13. CELEBREX [Concomitant]
  14. SYNTHROID [Concomitant]

REACTIONS (1)
  - HIP ARTHROPLASTY [None]
